FAERS Safety Report 9252307 (Version 1)
Quarter: 2013Q2

REPORT INFORMATION
  Report Type: Spontaneous
  Country: US (occurrence: US)
  Receive Date: 20130424
  Receipt Date: 20130424
  Transmission Date: 20140414
  Serious: Yes (Other)
  Sender: FDA-Public Use
  Company Number: US-PFIZER INC-2013127929

PATIENT
  Sex: Female

DRUGS (1)
  1. LYRICA [Suspect]
     Indication: SPINAL PAIN
     Dosage: 50 MG, UNK
     Dates: start: 20130420

REACTIONS (7)
  - Drug intolerance [Unknown]
  - Throat tightness [Unknown]
  - Head discomfort [Unknown]
  - Local swelling [Unknown]
  - Pharyngeal oedema [Unknown]
  - Swollen tongue [Unknown]
  - Hypoaesthesia oral [Unknown]
